FAERS Safety Report 8412389-7 (Version None)
Quarter: 2012Q2

REPORT INFORMATION
  Report Type: 
  Country: None (occurrence: None)
  Receive Date: 20120531
  Receipt Date: 20120531
  Transmission Date: 20120825
  Serious: No
  Sender: FDA-Public Use
  Company Number: None

PATIENT
  Sex: Female
  Weight: 90.9 kg

DRUGS (1)
  1. CARBOPLATIN [Suspect]
     Dosage: 704 MG

REACTIONS (2)
  - INFUSION RELATED REACTION [None]
  - DRUG HYPERSENSITIVITY [None]
